FAERS Safety Report 7606305 (Version 4)
Quarter: 2013Q1

REPORT INFORMATION
  Report Type: Spontaneous
  Country: FR (occurrence: FR)
  Receive Date: 20100924
  Receipt Date: 20130325
  Transmission Date: 20140127
  Serious: Yes (Life-Threatening, Other)
  Sender: FDA-Public Use
  Company Number: FR-PFIZER INC-FR-WYE-H17585010

PATIENT
  Age: 13 Day
  Sex: Male
  Weight: 2.2 kg

DRUGS (6)
  1. REVATIO [Suspect]
     Indication: PULMONARY ARTERIAL HYPERTENSION
     Dosage: 2MG AT 2:30 PM AND 2 MG AT 9:45 PM. (2 MG,2 IN 1 D)
     Route: 048
     Dates: start: 20100903, end: 20100903
  2. REVATIO [Interacting]
     Dosage: 0.25 MG/KG, 2X/DAY
     Route: 048
     Dates: start: 20100929
  3. REVATIO [Interacting]
     Dosage: 1.2 MG, 4X/DAY
     Route: 048
  4. EUPANTOL [Interacting]
     Indication: PROPHYLAXIS AGAINST GASTROINTESTINAL ULCER
     Dosage: 40 MG, UNK
     Route: 042
     Dates: start: 20100822, end: 20100929
  5. FENTANYL [Interacting]
     Indication: ENDOTRACHEAL INTUBATION
     Dosage: UNK
     Route: 042
     Dates: start: 20100822
  6. PERFALGAN [Concomitant]
     Indication: PAIN
     Dosage: UNK
     Route: 042
     Dates: start: 201008

REACTIONS (7)
  - Drug interaction [Recovered/Resolved]
  - Respiratory distress [Recovered/Resolved]
  - Tracheal haemorrhage [Recovered/Resolved]
  - Oesophagogastric fundoplasty [Unknown]
  - Diaphragmatic hernia [Unknown]
  - Anaemia [Recovered/Resolved]
  - Epistaxis [Recovering/Resolving]
